FAERS Safety Report 8860347 (Version 2)
Quarter: 2012Q4

REPORT INFORMATION
  Report Type: 
  Country: US (occurrence: US)
  Receive Date: 20121025
  Receipt Date: 20121213
  Transmission Date: 20130627
  Serious: Yes (Other)
  Sender: FDA-Public Use
  Company Number: US-PFIZER INC-2012264972

PATIENT
  Sex: Male

DRUGS (1)
  1. CELEBREX [Suspect]
     Indication: PAIN
     Dosage: UNK
     Dates: end: 20111103

REACTIONS (4)
  - Cerebrovascular accident [Not Recovered/Not Resolved]
  - Atrioventricular block [Unknown]
  - Dysgraphia [Not Recovered/Not Resolved]
  - Pain in extremity [Not Recovered/Not Resolved]
